FAERS Safety Report 21993690 (Version 1)
Quarter: 2023Q1

REPORT INFORMATION
  Report Type: Spontaneous
  Country: AU (occurrence: AU)
  Receive Date: 20230215
  Receipt Date: 20230215
  Transmission Date: 20230417
  Serious: Yes (Hospitalization)
  Sender: FDA-Public Use
  Company Number: AU-AMGEN-AUSSP2023024416

PATIENT
  Age: 64 Year
  Sex: Female

DRUGS (2)
  1. FILGRASTIM [Suspect]
     Active Substance: FILGRASTIM
     Indication: Febrile neutropenia
     Dosage: 300 MCG/0.5 ML, 2 TIMES/WK
     Route: 065
     Dates: start: 20220429, end: 20220519
  2. FILGRASTIM [Suspect]
     Active Substance: FILGRASTIM
     Indication: Anaemia

REACTIONS (1)
  - Vasculitic rash [Recovered/Resolved]

NARRATIVE: CASE EVENT DATE: 20220511
